FAERS Safety Report 12864755 (Version 3)
Quarter: 2016Q4

REPORT INFORMATION
  Report Type: Spontaneous
  Country: US (occurrence: US)
  Receive Date: 20161020
  Receipt Date: 20161123
  Transmission Date: 20170207
  Serious: Yes (Life-Threatening)
  Sender: FDA-Public Use
  Company Number: PHEH2016US026874

PATIENT
  Age: 68 Year
  Sex: Male
  Weight: 74.84 kg

DRUGS (3)
  1. EXELON PATCH [Suspect]
     Active Substance: RIVASTIGMINE
     Indication: COGNITIVE DISORDER
     Dosage: 4.6 MG, UNK (5 CM2 PATCH)
     Route: 062
     Dates: start: 201409
  2. EXELON PATCH [Suspect]
     Active Substance: RIVASTIGMINE
     Dosage: 9.5 MG, QD (10 CM2 PATCH)
     Route: 062
     Dates: start: 20161001
  3. EXELON PATCH [Suspect]
     Active Substance: RIVASTIGMINE
     Dosage: 4.6 MG, UNK (5 CM2 PATCH)
     Route: 062
     Dates: end: 20161004

REACTIONS (7)
  - Aphasia [Recovered/Resolved]
  - Dysarthria [Recovering/Resolving]
  - Drug intolerance [Recovering/Resolving]
  - Feeling abnormal [Recovering/Resolving]
  - Insomnia [Recovered/Resolved]
  - Formication [Recovering/Resolving]
  - Dizziness [Recovered/Resolved]

NARRATIVE: CASE EVENT DATE: 20161001
